FAERS Safety Report 21406070 (Version 2)
Quarter: 2022Q4

REPORT INFORMATION
  Report Type: Report from Study
  Country: FR (occurrence: FR)
  Receive Date: 20221004
  Receipt Date: 20221104
  Transmission Date: 20230113
  Serious: Yes (Hospitalization)
  Sender: FDA-Public Use
  Company Number: FR-SUN PHARMACEUTICAL INDUSTRIES LTD-2022RR-357205

PATIENT
  Sex: Male
  Weight: 70 kg

DRUGS (3)
  1. TILDRAKIZUMAB [Suspect]
     Active Substance: TILDRAKIZUMAB
     Indication: Psoriasis
     Dosage: 200 MILLIGRAM WEEK 0, WEEK 4
     Route: 058
     Dates: start: 20220719
  2. TILDRAKIZUMAB [Suspect]
     Active Substance: TILDRAKIZUMAB
     Dosage: 200 MILLIGRAM
     Route: 058
     Dates: start: 20220915
  3. TILDRAKIZUMAB [Suspect]
     Active Substance: TILDRAKIZUMAB
     Dosage: 200 MILLIGRAM EVERY 12 WEEKS
     Route: 058

REACTIONS (1)
  - Bursitis [Recovered/Resolved]

NARRATIVE: CASE EVENT DATE: 20220801
